FAERS Safety Report 5311625-3 (Version None)
Quarter: 2007Q2

REPORT INFORMATION
  Report Type: 
  Country: None (occurrence: None)
  Receive Date: 20070426
  Receipt Date: 20070426
  Transmission Date: 20071010
  Serious: Yes (Hospitalization)
  Sender: FDA-Public Use
  Company Number: None

PATIENT
  Age: 87 Year
  Sex: Male
  Weight: 61.2356 kg

DRUGS (1)
  1. VANCOMYCIN [Suspect]
     Indication: PNEUMONIA
     Dosage: 1.5 GRAMS DAILY IV
     Route: 042
     Dates: start: 20060525, end: 20060607

REACTIONS (2)
  - INFUSION RELATED REACTION [None]
  - RENAL FAILURE ACUTE [None]
